FAERS Safety Report 19685757 (Version 1)
Quarter: 2021Q3

REPORT INFORMATION
  Report Type: Spontaneous
  Country: IT (occurrence: IT)
  Receive Date: 20210811
  Receipt Date: 20210811
  Transmission Date: 20211014
  Serious: Yes (Hospitalization)
  Sender: FDA-Public Use
  Company Number: NVSC2021IT177713

PATIENT
  Age: 20 Year
  Sex: Male

DRUGS (2)
  1. QUETIAPINE. [Suspect]
     Active Substance: QUETIAPINE
     Indication: INTENTIONAL OVERDOSE
     Dosage: UNK
     Route: 048
     Dates: start: 20210719, end: 20210719
  2. XANAX [Suspect]
     Active Substance: ALPRAZOLAM
     Indication: INTENTIONAL OVERDOSE
     Dosage: UNK
     Route: 048
     Dates: start: 20210719, end: 20210719

REACTIONS (4)
  - Sopor [Not Recovered/Not Resolved]
  - Somnolence [Not Recovered/Not Resolved]
  - Intentional overdose [Not Recovered/Not Resolved]
  - Suicide attempt [Not Recovered/Not Resolved]

NARRATIVE: CASE EVENT DATE: 20210719
